FAERS Safety Report 17162052 (Version 1)
Quarter: 2019Q4

REPORT INFORMATION
  Report Type: Spontaneous
  Country: US (occurrence: US)
  Receive Date: 20191122
  Receipt Date: 20191122
  Transmission Date: 20200122
  Serious: Yes (Hospitalization)
  Sender: FDA-Public Use
  Company Number: None

PATIENT
  Age: 16 Year
  Sex: Male
  Weight: 60.9 kg

DRUGS (4)
  1. VINCRISTINE SULFATE. [Suspect]
     Active Substance: VINCRISTINE SULFATE
     Dates: end: 20191116
  2. PREDNISONE. [Suspect]
     Active Substance: PREDNISONE
     Dates: end: 20191020
  3. METHOTREXATE. [Suspect]
     Active Substance: METHOTREXATE
     Dates: end: 20191106
  4. MERCAPTOPURINE. [Suspect]
     Active Substance: MERCAPTOPURINE
     Dates: end: 20191111

REACTIONS (12)
  - Alanine aminotransferase increased [None]
  - Abdominal pain [None]
  - Dehydration [None]
  - Aspartate aminotransferase increased [None]
  - Dizziness [None]
  - Kidney enlargement [None]
  - Vomiting [None]
  - Pancreatic disorder [None]
  - Nausea [None]
  - Hepatomegaly [None]
  - Splenomegaly [None]
  - Confusional state [None]

NARRATIVE: CASE EVENT DATE: 20191112
